FAERS Safety Report 8445488-4 (Version None)
Quarter: 2012Q2

REPORT INFORMATION
  Report Type: 
  Country: None (occurrence: None)
  Receive Date: 20120618
  Receipt Date: 20120608
  Transmission Date: 20120825
  Serious: Yes (Other)
  Sender: FDA-Public Use
  Company Number: IT-JNJFOC-20120606584

PATIENT
  Sex: Female

DRUGS (3)
  1. MICONAZOLE [Suspect]
     Indication: LIP DRY
     Dosage: 2%
     Route: 048
     Dates: start: 20120318, end: 20120328
  2. MICONAZOLE [Suspect]
     Route: 048
  3. COUMADIN [Suspect]
     Indication: CARDIAC VALVE PROSTHESIS USER
     Route: 048
     Dates: start: 19990129, end: 20120504

REACTIONS (1)
  - INTERNATIONAL NORMALISED RATIO INCREASED [None]
